FAERS Safety Report 12555428 (Version 1)
Quarter: 2016Q3

REPORT INFORMATION
  Report Type: Spontaneous
  Country: CA (occurrence: None)
  Receive Date: 20160713
  Receipt Date: 20160713
  Transmission Date: 20161109
  Serious: Yes (Death, Hospitalization)
  Sender: FDA-Public Use
  Company Number: None

PATIENT
  Age: 61 Year
  Sex: Female
  Weight: 62.8 kg

DRUGS (5)
  1. TRAZODONE [Concomitant]
     Active Substance: TRAZODONE HYDROCHLORIDE
  2. ATIVAN [Concomitant]
     Active Substance: LORAZEPAM
  3. DECADRON [Concomitant]
     Active Substance: DEXAMETHASONE
  4. LOVENOX [Concomitant]
     Active Substance: ENOXAPARIN SODIUM
  5. MEMANTINE HYDROCHLORIDE. [Suspect]
     Active Substance: MEMANTINE HYDROCHLORIDE
     Dates: end: 20160615

REACTIONS (5)
  - Splenic infarction [None]
  - Pulmonary embolism [None]
  - Renal infarct [None]
  - Cerebral artery embolism [None]
  - Pulmonary infarction [None]

NARRATIVE: CASE EVENT DATE: 20160617
